FAERS Safety Report 7463199-9 (Version None)
Quarter: 2011Q2

REPORT INFORMATION
  Report Type: 
  Country: None (occurrence: None)
  Receive Date: 20110506
  Receipt Date: 20110504
  Transmission Date: 20111010
  Serious: No
  Sender: FDA-Public Use
  Company Number: AU-ROCHE-764292

PATIENT
  Sex: Female

DRUGS (9)
  1. METHOTREXATE [Suspect]
     Dosage: DOSE: 20 MG/WK
     Route: 048
     Dates: start: 20100101
  2. ACTEMRA [Suspect]
     Route: 042
     Dates: start: 20101222
  3. ACTEMRA [Suspect]
     Route: 042
     Dates: start: 20101115
  4. ACTEMRA [Suspect]
     Route: 042
     Dates: start: 20101213
  5. ACTEMRA [Suspect]
     Indication: RHEUMATOID ARTHRITIS
     Route: 042
     Dates: start: 20100823
  6. PLAQUENIL [Suspect]
     Dosage: DOSE: 400 MG/D
     Route: 048
     Dates: start: 20100101, end: 20110317
  7. ACTEMRA [Suspect]
     Route: 042
  8. FOLIC ACID [Concomitant]
  9. PREDNISONE [Suspect]
     Dosage: DOSE: 5 MG/D
     Route: 048
     Dates: start: 19870101

REACTIONS (2)
  - MIGRAINE [None]
  - DIARRHOEA [None]
